FAERS Safety Report 5649164-2 (Version None)
Quarter: 2008Q1

REPORT INFORMATION
  Report Type: 
  Country: None (occurrence: None)
  Receive Date: 20080229
  Receipt Date: 20080214
  Transmission Date: 20080703
  Serious: Yes (Hospitalization)
  Sender: FDA-Public Use
  Company Number: 2008BI004163

PATIENT
  Age: 41 Year
  Sex: Female

DRUGS (1)
  1. AVONEX [Suspect]
     Indication: MULTIPLE SCLEROSIS
     Dosage: 30 UG QW IM
     Route: 030
     Dates: start: 20070330, end: 20071219

REACTIONS (5)
  - COGNITIVE DISORDER [None]
  - FATIGUE [None]
  - PARAESTHESIA ORAL [None]
  - TINNITUS [None]
  - VOMITING [None]
